FAERS Safety Report 17211505 (Version 1)
Quarter: 2019Q4

REPORT INFORMATION
  Report Type: Other
  Country: SE (occurrence: SE)
  Receive Date: 20191229
  Receipt Date: 20191229
  Transmission Date: 20200122
  Serious: Yes (Disabling)
  Sender: FDA-Public Use
  Company Number: SE-DENTSPLY-2019SCDP000702

PATIENT
  Age: 50 Year
  Sex: Female
  Weight: 64 kg

DRUGS (1)
  1. PRILOCAINE AND LIDOCAINE [Suspect]
     Active Substance: LIDOCAINE\PRILOCAINE
     Indication: ANAESTHESIA PROCEDURE
     Dosage: 1 TOTAL
     Dates: start: 20191121, end: 20191121

REACTIONS (3)
  - Genital discomfort [None]
  - Vulvovaginal swelling [None]
  - Vulvovaginal burning sensation [None]

NARRATIVE: CASE EVENT DATE: 20191121
